FAERS Safety Report 5546560-9 (Version None)
Quarter: 2007Q4

REPORT INFORMATION
  Report Type: 
  Country: None (occurrence: None)
  Receive Date: 20071211
  Receipt Date: 20071206
  Transmission Date: 20080405
  Serious: Yes (Other)
  Sender: FDA-Public Use
  Company Number: US-JNJFOC-20071202238

PATIENT
  Age: 61 Year
  Sex: Female

DRUGS (4)
  1. EXTRA STRENGTH TYLENOL [Suspect]
  2. EXTRA STRENGTH TYLENOL [Suspect]
     Indication: HEADACHE
  3. LOMOTIL [Concomitant]
  4. DIAZEPAM [Concomitant]

REACTIONS (2)
  - DYSPNOEA [None]
  - URTICARIA [None]
